FAERS Safety Report 25151782 (Version 1)
Quarter: 2025Q2

REPORT INFORMATION
  Report Type: Report from Study
  Country: US (occurrence: US)
  Receive Date: 20250402
  Receipt Date: 20250402
  Transmission Date: 20250716
  Serious: Yes (Hospitalization)
  Sender: ALNYLAM PHARMACEUTICALS
  Company Number: US-ALNYLAM PHARMACEUTICALS, INC.-ALN-2025-001795

PATIENT

DRUGS (1)
  1. AMVUTTRA [Suspect]
     Active Substance: VUTRISIRAN
     Indication: Hereditary neuropathic amyloidosis
     Dosage: 25 MILLIGRAM (STRENGTH: 25 MILLIGRAM/0.5 MILLILITER), Q3M
     Route: 058
     Dates: start: 20221207, end: 20221207

REACTIONS (4)
  - Gout [Unknown]
  - Atrial fibrillation [Unknown]
  - Thrombosis [Unknown]
  - Arrhythmia [Unknown]
